FAERS Safety Report 7600060 (Version 5)
Quarter: 2013Q4

REPORT INFORMATION
  Report Type: Report from Study
  Country: NZ (occurrence: NZ)
  Receive Date: 20100921
  Receipt Date: 20131031
  Transmission Date: 20140711
  Serious: Yes (Hospitalization, Other)
  Sender: FDA-Public Use
  Company Number: PHHY2010NZ56426

PATIENT
  Age: 79 Year
  Sex: Female

DRUGS (2)
  1. GLIVEC [Suspect]
     Indication: CHRONIC MYELOID LEUKAEMIA
     Dosage: 300 MG, DAILY
     Route: 048
     Dates: start: 20080201
  2. GLIVEC [Suspect]
     Dosage: 300 MG, DAILY
     Route: 048
     Dates: end: 20100803

REACTIONS (4)
  - Drug ineffective [Recovering/Resolving]
  - Subdural haematoma [Unknown]
  - Subdural haemorrhage [Unknown]
  - Thrombocytopenia [Unknown]
